FAERS Safety Report 10248709 (Version 1)
Quarter: 2014Q2

REPORT INFORMATION
  Report Type: Spontaneous
  Country: US (occurrence: None)
  Receive Date: 20140618
  Receipt Date: 20140618
  Transmission Date: 20141212
  Serious: No
  Sender: FDA-Public Use
  Company Number: None

PATIENT
  Age: 26 Year
  Sex: Male

DRUGS (1)
  1. MAKENA [Suspect]
     Dosage: 1 ML Q WK IM.
     Route: 030

REACTIONS (1)
  - Malaise [None]
